FAERS Safety Report 4917559-8 (Version None)
Quarter: 2006Q1

REPORT INFORMATION
  Report Type: 
  Country: None (occurrence: None)
  Receive Date: 20060221
  Receipt Date: 20060210
  Transmission Date: 20060701
  Serious: Yes (Life-Threatening)
  Sender: FDA-Public Use
  Company Number: CH-JNJFOC-20060202617

PATIENT
  Age: 88 Year
  Sex: Female

DRUGS (4)
  1. REMINYL [Suspect]
     Indication: DEMENTIA ALZHEIMER'S TYPE
     Route: 048
  2. ASPIRIN [Concomitant]
     Route: 048
  3. NEXIUM [Concomitant]
     Route: 048
  4. DIPIPERON [Concomitant]
     Route: 048

REACTIONS (6)
  - BRADYCARDIA [None]
  - BRONCHOSPASM [None]
  - DYSPNOEA [None]
  - ELECTROCARDIOGRAM QT PROLONGED [None]
  - MEDICATION ERROR [None]
  - VOMITING [None]
